FAERS Safety Report 20015707 (Version 1)
Quarter: 2021Q4

REPORT INFORMATION
  Report Type: Spontaneous
  Country: US (occurrence: None)
  Receive Date: 20211101
  Receipt Date: 20211101
  Transmission Date: 20220303
  Serious: No
  Sender: FDA-Public Use
  Company Number: None

PATIENT
  Age: 28 Year
  Sex: Male
  Weight: 72.7 kg

DRUGS (6)
  1. PRIVIGEN [Suspect]
     Active Substance: HUMAN IMMUNOGLOBULIN G
     Indication: Multiple sclerosis
     Dosage: OTHER FREQUENCY : EVERY 4 WEEKS;?
     Route: 041
     Dates: start: 20210319
  2. PRIVIGEN [Suspect]
     Active Substance: HUMAN IMMUNOGLOBULIN G
     Indication: Autoimmune disorder
     Dosage: OTHER FREQUENCY : EVERY 4 WEEKS;?
     Route: 041
     Dates: start: 20210319
  3. PRIVIGEN [Suspect]
     Active Substance: HUMAN IMMUNOGLOBULIN G
     Indication: Multiple sclerosis
  4. DIPHENHYDRAMINE [Concomitant]
     Active Substance: DIPHENHYDRAMINE
     Dates: start: 20211027, end: 20211027
  5. METHYLPREDNISOLONE [Concomitant]
     Active Substance: METHYLPREDNISOLONE
     Dates: start: 20211027, end: 20211027
  6. FAMOTIDINE [Concomitant]
     Active Substance: FAMOTIDINE
     Dates: start: 20211027, end: 20211027

REACTIONS (7)
  - Pruritus [None]
  - Urticaria [None]
  - Urticaria [None]
  - Palmar erythema [None]
  - Recalled product [None]
  - Infusion related hypersensitivity reaction [None]
  - Product quality issue [None]

NARRATIVE: CASE EVENT DATE: 20211027
